FAERS Safety Report 22973580 (Version 2)
Quarter: 2023Q4

REPORT INFORMATION
  Report Type: Spontaneous
  Country: CA (occurrence: CA)
  Receive Date: 20230922
  Receipt Date: 20231019
  Transmission Date: 20240109
  Serious: Yes (Other)
  Sender: FDA-Public Use
  Company Number: CA-PFIZER INC-202300304729

PATIENT
  Age: 52 Year
  Sex: Male

DRUGS (6)
  1. XELJANZ [Suspect]
     Active Substance: TOFACITINIB CITRATE
     Indication: Colitis ulcerative
     Dosage: 10 MG, 2X/DAY
     Route: 048
     Dates: start: 20230818
  2. ASACOL [Concomitant]
     Active Substance: MESALAMINE
     Dosage: 2400 MG, DAILY (1DF)
  3. CRESTOR [Concomitant]
     Active Substance: ROSUVASTATIN CALCIUM
     Dosage: 1 DF
  4. PREDNISONE [Concomitant]
     Active Substance: PREDNISONE
     Dosage: 1 DF
  5. RAMIPRIL [Concomitant]
     Active Substance: RAMIPRIL
     Dosage: 1 DF
  6. PANTOPRAZOLE MAGNESIUM [Concomitant]
     Active Substance: PANTOPRAZOLE MAGNESIUM
     Dosage: 1 DF

REACTIONS (3)
  - Loss of personal independence in daily activities [Unknown]
  - Condition aggravated [Unknown]
  - Therapeutic product effect incomplete [Unknown]

NARRATIVE: CASE EVENT DATE: 20230101
